FAERS Safety Report 6211101-X (Version None)
Quarter: 2009Q2

REPORT INFORMATION
  Report Type: 
  Country: None (occurrence: None)
  Receive Date: 20090602
  Receipt Date: 20090527
  Transmission Date: 20091009
  Serious: Yes (Other)
  Sender: FDA-Public Use
  Company Number: US-BAYER-200920774NA

PATIENT
  Age: 81 Year
  Sex: Male
  Weight: 81 kg

DRUGS (7)
  1. CIPRO [Suspect]
     Indication: COUGH
     Dosage: TOTAL DAILY DOSE: 1000 MG  UNIT DOSE: 500 MG
     Dates: start: 20090301
  2. ALLOPURINOL [Concomitant]
  3. COZAAR [Concomitant]
  4. METFORMIN HYDROCHLORIDE [Concomitant]
  5. GLYBURIDE [Concomitant]
  6. ASPIRIN [Concomitant]
  7. HYDROXYUREA [Concomitant]

REACTIONS (2)
  - MUSCLE RUPTURE [None]
  - PAIN IN EXTREMITY [None]
